FAERS Safety Report 19556063 (Version 4)
Quarter: 2021Q4

REPORT INFORMATION
  Report Type: Spontaneous
  Country: US (occurrence: US)
  Receive Date: 20210714
  Receipt Date: 20211123
  Transmission Date: 20220303
  Serious: No
  Sender: FDA-Public Use
  Company Number: US-PFIZER INC-2021703336

PATIENT
  Age: 9 Year
  Sex: Male
  Weight: 39.92 kg

DRUGS (3)
  1. GENOTROPIN [Suspect]
     Active Substance: SOMATROPIN
     Indication: Hypopituitarism
     Dosage: 2 MG, DAILY
  2. GENOTROPIN [Suspect]
     Active Substance: SOMATROPIN
     Dosage: 1 MG, DAILY
     Dates: start: 20180720
  3. GENOTROPIN [Suspect]
     Active Substance: SOMATROPIN
     Dosage: 1.8 MG, DAILY

REACTIONS (6)
  - Glucose tolerance impaired [Not Recovered/Not Resolved]
  - Feeling abnormal [Unknown]
  - Device use issue [Unknown]
  - Drug dose omission by device [Unknown]
  - Device information output issue [Unknown]
  - Off label use [Unknown]

NARRATIVE: CASE EVENT DATE: 20210612
